FAERS Safety Report 10019730 (Version 1)
Quarter: 2014Q1

REPORT INFORMATION
  Report Type: Spontaneous
  Country: US (occurrence: US)
  Receive Date: 20140318
  Receipt Date: 20140318
  Transmission Date: 20141002
  Serious: Yes (Hospitalization, Other)
  Sender: FDA-Public Use
  Company Number: US-GILEAD-2014-0097118

PATIENT
  Age: 36 Year
  Sex: Male

DRUGS (9)
  1. LETAIRIS [Suspect]
     Indication: PULMONARY HYPERTENSION
     Dosage: 10 MG, QD
     Route: 065
     Dates: start: 20140208
  2. PRILOSEC                           /00661201/ [Concomitant]
  3. ADVAIR [Concomitant]
  4. DALIRESP [Concomitant]
  5. ATENOLOL [Concomitant]
  6. LASIX                              /00032601/ [Concomitant]
  7. SIMVASTATIN [Concomitant]
  8. METFORMIN [Concomitant]
  9. VITAMIN B 12 [Concomitant]

REACTIONS (1)
  - Thrombosis [Recovered/Resolved]
